FAERS Safety Report 16576752 (Version 1)
Quarter: 2019Q3

REPORT INFORMATION
  Report Type: Spontaneous
  Country: US (occurrence: US)
  Receive Date: 20190715
  Receipt Date: 20190715
  Transmission Date: 20191004
  Serious: Yes (Hospitalization, Disabling, Other)
  Sender: FDA-Public Use
  Company Number: None

PATIENT
  Age: 31 Year
  Sex: Female
  Weight: 65.25 kg

DRUGS (1)
  1. LEVOFLOXACIN. [Suspect]
     Active Substance: LEVOFLOXACIN
     Indication: PYELONEPHRITIS
     Dosage: ?          QUANTITY:1 TABLET(S);?
     Route: 048
     Dates: start: 20180622, end: 20180722

REACTIONS (10)
  - Fatigue [None]
  - Tinnitus [None]
  - Muscle atrophy [None]
  - Tendon disorder [None]
  - Insomnia [None]
  - Pain in extremity [None]
  - Muscular weakness [None]
  - Disturbance in attention [None]
  - Neuropathy peripheral [None]
  - Gait disturbance [None]

NARRATIVE: CASE EVENT DATE: 20180622
